FAERS Safety Report 10175572 (Version 1)
Quarter: 2014Q2

REPORT INFORMATION
  Report Type: Spontaneous
  Country: US (occurrence: US)
  Receive Date: 20140516
  Receipt Date: 20140516
  Transmission Date: 20141212
  Serious: No
  Sender: FDA-Public Use
  Company Number: US-009507513-1405USA005558

PATIENT
  Age: 10 Year
  Sex: Male

DRUGS (2)
  1. GRASTEK [Suspect]
     Indication: SEASONAL ALLERGY
     Dosage: 2800 BAU, QD
     Route: 060
     Dates: start: 20140418, end: 2014
  2. BENADRYL [Concomitant]
     Dosage: UNK, UNKNOWN

REACTIONS (4)
  - Paraesthesia [Recovered/Resolved]
  - Throat tightness [Recovered/Resolved]
  - Chest discomfort [Recovered/Resolved]
  - Dizziness [Recovered/Resolved]
